FAERS Safety Report 10334942 (Version 2)
Quarter: 2014Q4

REPORT INFORMATION
  Report Type: Spontaneous
  Country: US (occurrence: None)
  Receive Date: 20140721
  Receipt Date: 20141023
  Transmission Date: 20150528
  Serious: Yes (Other)
  Sender: FDA-Public Use
  Company Number: 2013-US-004927

PATIENT
  Age: 48 Year
  Sex: Female

DRUGS (1)
  1. XYREM [Suspect]
     Active Substance: SODIUM OXYBATE
     Indication: INSOMNIA
     Dosage: 2 G, BID, ORAL
     Route: 048
     Dates: start: 20131211, end: 20131211

REACTIONS (32)
  - Serotonin syndrome [None]
  - Drug withdrawal syndrome [None]
  - Blood sodium abnormal [None]
  - Psychotic behaviour [None]
  - Venous injury [None]
  - Ear discomfort [None]
  - Hyperacusis [None]
  - Musculoskeletal discomfort [None]
  - Intentional product misuse [None]
  - Muscle tightness [None]
  - Pain [None]
  - Hypernatraemia [None]
  - Metabolic disorder [None]
  - Dehydration [None]
  - Unevaluable event [None]
  - Pollakiuria [None]
  - Dry mouth [None]
  - Abnormal dreams [None]
  - Off label use [None]
  - Constipation [None]
  - Hypoaesthesia [None]
  - Sleep paralysis [None]
  - Burning sensation [None]
  - Feeling hot [None]
  - Photophobia [None]
  - Asthenia [None]
  - Tremor [None]
  - Dyspnoea [None]
  - Heart rate increased [None]
  - Dysphagia [None]
  - Insomnia [None]
  - Hypertension [None]

NARRATIVE: CASE EVENT DATE: 20131211
